FAERS Safety Report 7587260-3 (Version None)
Quarter: 2011Q3

REPORT INFORMATION
  Report Type: 
  Country: None (occurrence: None)
  Receive Date: 20110701
  Receipt Date: 20110621
  Transmission Date: 20111222
  Serious: Yes (Hospitalization)
  Sender: FDA-Public Use
  Company Number: PHHY2011US55422

PATIENT
  Age: 75 Year
  Sex: Female

DRUGS (9)
  1. ESCITALOPRAM [Concomitant]
     Dosage: 10 MG, DAILY
  2. HYDROCHLOROTHIAZIDE [Concomitant]
     Dosage: 25 MG, DAILY
  3. RISPERIDONE [Suspect]
     Dosage: 6 MG, DAILY
     Route: 048
  4. RISPERDAL [Suspect]
     Dosage: 37.5 MG, EVERY 2 WEEKS
     Route: 030
  5. PHENOBARBITAL TAB [Concomitant]
     Dosage: 60 MG, DAILY
  6. CLONAZEPAM [Concomitant]
     Dosage: 1 MG, TID
  7. DONEPEZIL HCL [Concomitant]
     Dosage: 10 MG, DAILY
  8. HALOPERIDOL [Concomitant]
     Dosage: 7.5 MG, DAILY
  9. PHENYTOIN [Suspect]
     Dosage: 250 MG, DAILY

REACTIONS (13)
  - NEUTROPENIA [None]
  - MYDRIASIS [None]
  - SINUS BRADYCARDIA [None]
  - TOXICITY TO VARIOUS AGENTS [None]
  - HYPOTHERMIA [None]
  - MENTAL STATUS CHANGES [None]
  - STUPOR [None]
  - COMMUNICATION DISORDER [None]
  - THROMBOCYTOPENIA [None]
  - SLOW RESPONSE TO STIMULI [None]
  - UNRESPONSIVE TO STIMULI [None]
  - HYPOREFLEXIA [None]
  - GRAND MAL CONVULSION [None]
